FAERS Safety Report 8301850-1 (Version None)
Quarter: 2012Q2

REPORT INFORMATION
  Report Type: 
  Country: None (occurrence: None)
  Receive Date: 20120420
  Receipt Date: 20120411
  Transmission Date: 20120825
  Serious: Yes (Death, Hospitalization)
  Sender: FDA-Public Use
  Company Number: JP-EISAI INC-E7389-01820-CLI-JP

PATIENT
  Sex: Female
  Weight: 100 kg

DRUGS (21)
  1. DECADRON [Concomitant]
     Indication: PROPHYLAXIS
     Route: 042
  2. URSO 250 [Concomitant]
     Route: 048
  3. MUCOSTA [Concomitant]
     Route: 048
  4. HALAVEN [Suspect]
     Indication: METASTASES TO LYMPH NODES
  5. HALAVEN [Suspect]
     Indication: METASTASES TO LUNG
  6. RIKAVARIN [Concomitant]
     Indication: RECTAL ULCER
     Route: 042
  7. ACETAMINOPHEN [Concomitant]
     Route: 048
  8. FENTANYL CITRATE [Concomitant]
  9. NEUROTROPIN [Concomitant]
     Route: 048
  10. HALAVEN [Suspect]
     Indication: METASTASES TO BONE
  11. ADONA [Concomitant]
     Route: 042
  12. VANCOMYCIN [Concomitant]
     Route: 042
  13. LOXONIN [Concomitant]
     Route: 048
  14. ZONISAMIDE [Concomitant]
     Route: 048
  15. SEROTONE [Concomitant]
     Indication: PROPHYLAXIS
     Route: 042
  16. IRON SUCROSE [Concomitant]
     Route: 042
  17. LYRICA [Concomitant]
     Route: 048
  18. LASIX [Concomitant]
     Route: 048
  19. RABEPRAZOLE SODIUM [Concomitant]
     Route: 048
  20. DIAZEPAM [Concomitant]
     Route: 042
  21. HALAVEN [Suspect]
     Indication: BREAST CANCER RECURRENT
     Route: 041
     Dates: start: 20111101, end: 20111108

REACTIONS (2)
  - NEOPLASM MALIGNANT [None]
  - RECTAL ULCER HAEMORRHAGE [None]
